FAERS Safety Report 5623012-9 (Version None)
Quarter: 2008Q1

REPORT INFORMATION
  Report Type: 
  Country: None (occurrence: None)
  Receive Date: 20080212
  Receipt Date: 20080204
  Transmission Date: 20080703
  Serious: Yes (Disabling)
  Sender: FDA-Public Use
  Company Number: GB-AVENTIS-200811213GDDC

PATIENT

DRUGS (1)
  1. METRONIDAZOLE HCL [Suspect]
     Dosage: DOSE: UNK
     Route: 048

REACTIONS (3)
  - DEPRESSED MOOD [None]
  - NIGHTMARE [None]
  - TREMOR [None]
